FAERS Safety Report 6958197-5 (Version None)
Quarter: 2010Q3

REPORT INFORMATION
  Report Type: 
  Country: None (occurrence: None)
  Receive Date: 20100831
  Receipt Date: 20100824
  Transmission Date: 20110219
  Serious: Yes (Hospitalization)
  Sender: FDA-Public Use
  Company Number: US-EISAI INC.-E7272-00071-SPO-US

PATIENT
  Age: 31 Year
  Sex: Male

DRUGS (1)
  1. ONTAK [Suspect]
     Route: 042
     Dates: start: 20100703, end: 20100707

REACTIONS (1)
  - CAPILLARY LEAK SYNDROME [None]
